FAERS Safety Report 23277949 (Version 1)
Quarter: 2023Q4

REPORT INFORMATION
  Report Type: Spontaneous
  Country: BR (occurrence: None)
  Receive Date: 20231208
  Receipt Date: 20231208
  Transmission Date: 20240110
  Serious: Yes (Hospitalization, Disabling, Congenital Anomaly, Other)
  Sender: FDA-Public Use
  Company Number: 2023A278004

PATIENT
  Age: 76 Year
  Sex: Female
  Weight: 72 kg

DRUGS (3)
  1. OMEPRAZOLE [Suspect]
     Active Substance: OMEPRAZOLE
     Indication: Abdominal discomfort
     Dosage: FASTING
     Route: 048
     Dates: start: 202308
  2. CLONAZEPAM [Suspect]
     Active Substance: CLONAZEPAM
     Indication: Insomnia
     Dosage: 1/2 TABLET
     Route: 048
  3. XARELTO [Concomitant]
     Active Substance: RIVAROXABAN
     Indication: Thrombosis
     Route: 048
     Dates: start: 2014

REACTIONS (12)
  - Cardiac failure [Not Recovered/Not Resolved]
  - Infarction [Unknown]
  - Diabetes mellitus [Not Recovered/Not Resolved]
  - Herpes virus infection [Unknown]
  - Neoplasm [Not Recovered/Not Resolved]
  - Abdominal distension [Recovered/Resolved]
  - Abdominal pain upper [Recovered/Resolved]
  - Hypogeusia [Recovered/Resolved]
  - Wound haemorrhage [Unknown]
  - Fall [Unknown]
  - Product use in unapproved indication [Not Recovered/Not Resolved]
  - Intentional product use issue [Not Recovered/Not Resolved]

NARRATIVE: CASE EVENT DATE: 20140101
